FAERS Safety Report 8306660-7 (Version None)
Quarter: 2012Q2

REPORT INFORMATION
  Report Type: 
  Country: None (occurrence: None)
  Receive Date: 20120420
  Receipt Date: 20120111
  Transmission Date: 20120825
  Serious: Yes (Other)
  Sender: FDA-Public Use
  Company Number: ALK_02213_2012

PATIENT
  Sex: Male
  Weight: 90.7194 kg

DRUGS (2)
  1. VIVITROL [Suspect]
     Indication: ALCOHOLISM
     Dosage: INTRAMUSCULAR
     Route: 030
     Dates: start: 20111213, end: 20111213
  2. WELLBUTRIN [Concomitant]

REACTIONS (5)
  - INJECTION SITE PAIN [None]
  - INFUSION SITE SWELLING [None]
  - INJECTION SITE INFECTION [None]
  - INJECTION SITE REACTION [None]
  - INJECTION SITE INDURATION [None]
